FAERS Safety Report 7563657-2 (Version None)
Quarter: 2011Q2

REPORT INFORMATION
  Report Type: 
  Country: None (occurrence: None)
  Receive Date: 20110621
  Receipt Date: 20110621
  Transmission Date: 20111010
  Serious: No
  Sender: FDA-Public Use
  Company Number: None

PATIENT
  Sex: Female
  Weight: 68.0396 kg

DRUGS (1)
  1. RECLAST [Suspect]
     Indication: OSTEOPOROSIS
     Dates: start: 20110421

REACTIONS (5)
  - GROIN PAIN [None]
  - ADVERSE EVENT [None]
  - ARTHRALGIA [None]
  - MALAISE [None]
  - BACK PAIN [None]
